FAERS Safety Report 12600976 (Version 1)
Quarter: 2016Q3

REPORT INFORMATION
  Report Type: Spontaneous
  Country: EC (occurrence: EC)
  Receive Date: 20160728
  Receipt Date: 20160728
  Transmission Date: 20161109
  Serious: Yes (Other)
  Sender: FDA-Public Use
  Company Number: EC-BAXTER-2016BAX038873

PATIENT
  Age: 37 Year
  Sex: Female
  Weight: 60 kg

DRUGS (5)
  1. PROPOFOL. [Concomitant]
     Active Substance: PROPOFOL
     Indication: INDUCTION OF ANAESTHESIA
     Route: 042
     Dates: start: 20160711, end: 20160711
  2. ROCURONIUM [Concomitant]
     Active Substance: ROCURONIUM BROMIDE
     Indication: INDUCTION OF ANAESTHESIA
     Route: 042
     Dates: start: 20160711, end: 20160711
  3. REMIFENTANIL [Suspect]
     Active Substance: REMIFENTANIL
     Indication: INDUCTION OF ANAESTHESIA
     Dosage: 0.5 MCG/KG/M
     Route: 042
     Dates: start: 20160711, end: 20160711
  4. REMIFENTANIL [Suspect]
     Active Substance: REMIFENTANIL
     Indication: MAINTENANCE OF ANAESTHESIA
     Dosage: 0.25-0.5 MCG/KG/M
     Route: 042
     Dates: start: 20160711, end: 20160711
  5. SUPRANE [Suspect]
     Active Substance: DESFLURANE
     Indication: MAINTENANCE OF ANAESTHESIA
     Route: 055
     Dates: start: 20160711, end: 20160711

REACTIONS (2)
  - Unwanted awareness during anaesthesia [Recovered/Resolved]
  - Device malfunction [None]

NARRATIVE: CASE EVENT DATE: 20160711
